FAERS Safety Report 22116219 (Version 1)
Quarter: 2023Q1

REPORT INFORMATION
  Report Type: Spontaneous
  Country: US (occurrence: None)
  Receive Date: 20230320
  Receipt Date: 20230320
  Transmission Date: 20230418
  Serious: No
  Sender: FDA-Public Use
  Company Number: None

PATIENT
  Age: 76 Year
  Sex: Male
  Weight: 123.1 kg

DRUGS (16)
  1. TEMOZOLOMIDE [Suspect]
     Active Substance: TEMOZOLOMIDE
     Indication: Brain neoplasm malignant
     Dosage: FREQUENCY : DAILY;?
     Route: 048
  2. TEMOZOLOMIDE [Suspect]
     Active Substance: TEMOZOLOMIDE
  3. ACETAMINOPHEN [Concomitant]
  4. ACIPHEX [Concomitant]
  5. ALLOPURINOL [Concomitant]
     Active Substance: ALLOPURINOL
  6. CRESTOR [Concomitant]
  7. DEXAMETHASONE [Concomitant]
  8. FLOMAX [Concomitant]
  9. KEPPRA [Concomitant]
  10. INSULIN GLARGINE [Concomitant]
  11. LOSARTAN [Concomitant]
  12. MULTIVITAMINS [Concomitant]
  13. ONDANSETRON [Concomitant]
  14. SODIUM BICARBONATE [Concomitant]
  15. TYLENOL [Concomitant]
  16. XANAX [Concomitant]

REACTIONS (1)
  - Therapy non-responder [None]
